FAERS Safety Report 8152464-8 (Version None)
Quarter: 2012Q1

REPORT INFORMATION
  Report Type: 
  Country: None (occurrence: None)
  Receive Date: 20120203
  Receipt Date: 20120125
  Transmission Date: 20120608
  Serious: Yes (Other)
  Sender: FDA-Public Use
  Company Number: 2012030941

PATIENT
  Age: 40 Year
  Sex: Male
  Weight: 125.1928 kg

DRUGS (9)
  1. RAMIPRIL [Concomitant]
  2. OXYGEN (OXYGEN) [Concomitant]
  3. EXFORGE [Concomitant]
  4. HIZENTRA [Suspect]
     Indication: IMMUNODEFICIENCY COMMON VARIABLE
     Dosage: (20 G 1X WEEK, 4 GM 20 ML VIAL; 100 ML IN 6 SITES OVER 1-2 HOURS SUBCUTANEOUS)
     Route: 058
  5. HYDROCHLOROTHIAZIDE [Concomitant]
  6. METFORMIN HCL [Concomitant]
  7. MUPIROCIN [Concomitant]
  8. LEXAPRO [Concomitant]
  9. LANTUS [Concomitant]

REACTIONS (3)
  - WOUND SECRETION [None]
  - INFECTED SKIN ULCER [None]
  - PAIN [None]
